FAERS Safety Report 7029208-6 (Version None)
Quarter: 2010Q3

REPORT INFORMATION
  Report Type: 
  Country: None (occurrence: None)
  Receive Date: 20100930
  Receipt Date: 20100615
  Transmission Date: 20110219
  Serious: Yes (Hospitalization)
  Sender: FDA-Public Use
  Company Number: OTH-PAT-2010002

PATIENT
  Age: 4 Year
  Sex: Female

DRUGS (5)
  1. CYSTADANE [Suspect]
     Indication: VITAMIN B12 DEFICIENCY
     Dosage: 5 G EVERY DAY ORAL
     Route: 048
     Dates: start: 20070928
  2. HYDROXOCOBALAMIN [Concomitant]
  3. POLYETHYLENE GLYCOL 3350 (MIRALAX) [Concomitant]
  4. LORATADINE [Concomitant]
  5. AMPHETAMINE/DEXTROAMPHETAMINE (ADDERALL) [Concomitant]

REACTIONS (1)
  - KIDNEY INFECTION [None]
